FAERS Safety Report 8203237-9 (Version None)
Quarter: 2012Q1

REPORT INFORMATION
  Report Type: 
  Country: None (occurrence: None)
  Receive Date: 20120312
  Receipt Date: 20120309
  Transmission Date: 20120608
  Serious: No
  Sender: FDA-Public Use
  Company Number: US-PFIZER INC-2011294886

PATIENT
  Sex: Male
  Weight: 130 kg

DRUGS (10)
  1. CHANTIX [Suspect]
     Indication: NICOTINE DEPENDENCE
     Dosage: 0.5 MG, 1X/DAY
     Route: 048
     Dates: start: 20111120, end: 20111101
  2. PREVACID [Concomitant]
     Indication: DYSPEPSIA
     Dosage: 5 MG, UNK
  3. ALBUTEROL [Concomitant]
     Indication: ASTHMA
     Dosage: UNK
  4. ADVAIR DISKUS 100/50 [Concomitant]
     Indication: ASTHMA
     Dosage: UNK
  5. CHANTIX [Suspect]
     Indication: SMOKING CESSATION THERAPY
     Dosage: UNK
     Route: 048
     Dates: start: 20111101, end: 20111101
  6. CHANTIX [Suspect]
     Dosage: UNK
     Dates: start: 20111101, end: 20111224
  7. PRILOSEC [Concomitant]
     Indication: GASTROOESOPHAGEAL REFLUX DISEASE
     Dosage: UNK
  8. OXYBUTYNIN CHLORIDE [Concomitant]
     Dosage: UNK
  9. OMEPRAZOLE [Concomitant]
     Indication: DYSPEPSIA
     Dosage: 20 MG, DAILY
  10. NORTRIPTYLINE [Concomitant]
     Indication: MIGRAINE
     Dosage: 25 MG, UNK

REACTIONS (6)
  - ANGER [None]
  - MALAISE [None]
  - STRESS [None]
  - FEELING ABNORMAL [None]
  - NAUSEA [None]
  - ABNORMAL DREAMS [None]
